FAERS Safety Report 7412462-6 (Version None)
Quarter: 2011Q2

REPORT INFORMATION
  Report Type: 
  Country: None (occurrence: None)
  Receive Date: 20110408
  Receipt Date: 20110408
  Transmission Date: 20111010
  Serious: Yes (Other)
  Sender: FDA-Public Use
  Company Number: None

PATIENT
  Age: 3 Year
  Sex: Male
  Weight: 106.1417 kg

DRUGS (1)
  1. LEVAQUIN [Suspect]
     Indication: URINARY TRACT INFECTION
     Dosage: 500 MGS 10 DAYS PO
     Route: 048
     Dates: start: 20080320, end: 20080330

REACTIONS (4)
  - VITREOUS DETACHMENT [None]
  - VISION BLURRED [None]
  - VITREOUS FLOATERS [None]
  - PHOTOPSIA [None]
